FAERS Safety Report 12747259 (Version 3)
Quarter: 2017Q2

REPORT INFORMATION
  Report Type: Spontaneous
  Country: JP (occurrence: JP)
  Receive Date: 20160915
  Receipt Date: 20170518
  Transmission Date: 20170830
  Serious: Yes (Other)
  Sender: FDA-Public Use
  Company Number: JP-ASTELLAS-2016JP015425AA

PATIENT
  Age: 66 Year
  Sex: Male
  Weight: 64 kg

DRUGS (8)
  1. UBRETID [Concomitant]
     Active Substance: DISTIGMINE BROMIDE
     Indication: CEREBROVASCULAR ACCIDENT PROPHYLAXIS
     Route: 065
     Dates: start: 20131220, end: 20160806
  2. UBRETID [Concomitant]
     Active Substance: DISTIGMINE BROMIDE
     Indication: BENIGN PROSTATIC HYPERPLASIA
     Route: 065
     Dates: start: 20151120
  3. BETANIS [Suspect]
     Active Substance: MIRABEGRON
     Indication: HYPERTONIC BLADDER
     Route: 048
     Dates: start: 20160730, end: 20160806
  4. UBRETID [Concomitant]
     Active Substance: DISTIGMINE BROMIDE
     Indication: DYSURIA
     Route: 065
     Dates: start: 20160425, end: 20160729
  5. UBRETID [Concomitant]
     Active Substance: DISTIGMINE BROMIDE
     Indication: BENIGN PROSTATIC HYPERPLASIA
     Dosage: 0.5 MG, ONCE DAILY
     Route: 065
     Dates: start: 20151120
  6. BETANIS [Suspect]
     Active Substance: MIRABEGRON
     Indication: POLLAKIURIA
  7. UBRETID [Concomitant]
     Active Substance: DISTIGMINE BROMIDE
     Indication: HYPERTENSION
     Route: 065
     Dates: start: 20130726
  8. UBRETID [Concomitant]
     Active Substance: DISTIGMINE BROMIDE
     Indication: HYPERTENSION
     Route: 065
     Dates: start: 20130726

REACTIONS (1)
  - Haematuria [Recovered/Resolved]

NARRATIVE: CASE EVENT DATE: 20160731
